FAERS Safety Report 21034291 (Version 3)
Quarter: 2022Q3

REPORT INFORMATION
  Report Type: Spontaneous
  Country: US (occurrence: US)
  Receive Date: 20220701
  Receipt Date: 20220914
  Transmission Date: 20221027
  Serious: No
  Sender: FDA-Public Use
  Company Number: US-BRISTOL-MYERS SQUIBB COMPANY-2022-067149

PATIENT
  Age: 90 Year
  Sex: Female

DRUGS (4)
  1. REVLIMID [Suspect]
     Active Substance: LENALIDOMIDE
     Indication: Plasmacytoma
     Dosage: FREQUENCY-TAKE 1 CAPSULE BY MOUTH DAILY FOR 14 DAYS AND 1 WEEK OFF OF 21 DAYS CYCLE.
     Route: 048
     Dates: start: 20220531
  2. REVLIMID [Suspect]
     Active Substance: LENALIDOMIDE
     Dosage: TAKE 1 CAPSULE BY MOUTH EVERY DAY FOR 14 DAYS, THEN ?7 DAYS OFF
     Route: 048
  3. REVLIMID [Suspect]
     Active Substance: LENALIDOMIDE
     Dosage: FREQ: TAKE 1 CAPSULE BY MOUTH DAILY FOR 14 DAYS  ON 7 DAYS OFF
     Route: 048
  4. AZITHROMYCIN [Concomitant]
     Active Substance: AZITHROMYCIN
     Indication: Product used for unknown indication
     Route: 065

REACTIONS (4)
  - Rash [Recovered/Resolved]
  - Bronchitis [Unknown]
  - Drug hypersensitivity [Unknown]
  - Intentional product use issue [Unknown]
